FAERS Safety Report 9292866 (Version 1)
Quarter: 2013Q2

REPORT INFORMATION
  Report Type: Spontaneous
  Country: US (occurrence: None)
  Receive Date: 20130515
  Receipt Date: 20130515
  Transmission Date: 20140414
  Serious: No
  Sender: FDA-Public Use
  Company Number: None

PATIENT
  Age: 83 Year
  Sex: Female
  Weight: 63.5 kg

DRUGS (1)
  1. MAXITROL [Suspect]
     Indication: EYE INFECTION
     Route: 047
     Dates: start: 201205, end: 201210

REACTIONS (2)
  - Intraocular pressure increased [None]
  - Blindness [None]
